FAERS Safety Report 25635724 (Version 4)
Quarter: 2025Q3

REPORT INFORMATION
  Report Type: Spontaneous
  Country: US (occurrence: US)
  Receive Date: 20250802
  Receipt Date: 20250911
  Transmission Date: 20251020
  Serious: No
  Sender: CSL BEHRING
  Company Number: US-BEH-2025214905

PATIENT
  Age: 74 Year
  Sex: Female

DRUGS (5)
  1. PRIVIGEN [Suspect]
     Active Substance: HUMAN IMMUNOGLOBULIN G
     Indication: Hypogammaglobulinaemia
     Dosage: 25 G, QMT (Q 4 WEEKS)
     Route: 042
     Dates: start: 20250617
  2. PRIVIGEN [Suspect]
     Active Substance: HUMAN IMMUNOGLOBULIN G
     Dosage: 25 G, QMT (Q 4 WEEKS)
     Route: 042
     Dates: start: 20250617
  3. PRIVIGEN [Suspect]
     Active Substance: HUMAN IMMUNOGLOBULIN G
     Route: 065
     Dates: start: 20250728
  4. PRIVIGEN [Suspect]
     Active Substance: HUMAN IMMUNOGLOBULIN G
     Route: 042
  5. PRIVIGEN [Suspect]
     Active Substance: HUMAN IMMUNOGLOBULIN G
     Route: 042

REACTIONS (7)
  - Blood pressure increased [Recovering/Resolving]
  - Blood pressure increased [Recovered/Resolved]
  - Headache [Recovered/Resolved]
  - Therapy interrupted [Unknown]
  - Chest discomfort [Recovered/Resolved]
  - Therapy interrupted [Unknown]
  - Therapy change [Unknown]

NARRATIVE: CASE EVENT DATE: 20250728
